FAERS Safety Report 18858100 (Version 2)
Quarter: 2021Q1

REPORT INFORMATION
  Report Type: Report from Study
  Country: US (occurrence: US)
  Receive Date: 20210208
  Receipt Date: 20210210
  Transmission Date: 20210420
  Serious: Yes (Death, Other)
  Sender: FDA-Public Use
  Company Number: US-JNJFOC-20210146231

PATIENT
  Age: 39 Year
  Sex: Male

DRUGS (1)
  1. SPRAVATO [Suspect]
     Active Substance: ESKETAMINE
     Indication: DEPRESSION
     Dosage: 7 TOTAL DOSES
     Dates: start: 20201005, end: 20201105

REACTIONS (5)
  - Cerebrovascular accident [Fatal]
  - Cardiovascular disorder [Fatal]
  - Seizure [Unknown]
  - Multiple organ dysfunction syndrome [Fatal]
  - Withdrawal syndrome [Unknown]
